FAERS Safety Report 12875788 (Version 3)
Quarter: 2017Q1

REPORT INFORMATION
  Report Type: Spontaneous
  Country: IT (occurrence: IT)
  Receive Date: 20161024
  Receipt Date: 20170117
  Transmission Date: 20170428
  Serious: Yes (Other)
  Sender: FDA-Public Use
  Company Number: IT-TEVA-703699ACC

PATIENT
  Age: 34 Year
  Sex: Female

DRUGS (5)
  1. EPLERENONE. [Concomitant]
     Active Substance: EPLERENONE
  2. METILDOPA [Concomitant]
     Active Substance: METHYLDOPA
  3. MAGNESIUM SULFATE. [Concomitant]
     Active Substance: MAGNESIUM SULFATE
  4. NIFEDIPINE. [Suspect]
     Active Substance: NIFEDIPINE
     Indication: HYPERTENSION
     Dosage: 20 MILLIGRAM DAILY;
  5. POTASSIUM CHLORIDE. [Concomitant]
     Active Substance: POTASSIUM CHLORIDE

REACTIONS (6)
  - Exposure during pregnancy [Unknown]
  - Hypertension [Unknown]
  - Blood pressure increased [Unknown]
  - Caesarean section [Unknown]
  - Premature delivery [Unknown]
  - Palpitations [Recovering/Resolving]
